FAERS Safety Report 4601619-5 (Version None)
Quarter: 2005Q1

REPORT INFORMATION
  Report Type: 
  Country: None (occurrence: None)
  Receive Date: 20050308
  Receipt Date: 20030911
  Transmission Date: 20050727
  Serious: Yes (Other)
  Sender: FDA-Public Use
  Company Number: NL-GLAXOSMITHKLINE-B0309189A

PATIENT
  Age: 81 Year
  Sex: Male

DRUGS (2)
  1. DUTASTERIDE [Suspect]
     Indication: BENIGN PROSTATIC HYPERPLASIA
     Dosage: .5MG UNKNOWN
     Route: 065
     Dates: start: 20030801, end: 20041201
  2. CARBASALATE CALCIUM [Concomitant]
     Indication: ILL-DEFINED DISORDER
     Route: 065

REACTIONS (4)
  - GASTROINTESTINAL DISORDER [None]
  - GENITAL PRURITUS MALE [None]
  - INCONTINENCE [None]
  - PRURITUS [None]
